FAERS Safety Report 9716052 (Version 1)
Quarter: 2013Q4

REPORT INFORMATION
  Report Type: Spontaneous
  Country: IT (occurrence: IT)
  Receive Date: 20131127
  Receipt Date: 20131127
  Transmission Date: 20140711
  Serious: Yes (Death, Hospitalization, Other)
  Sender: FDA-Public Use
  Company Number: IT-BAYER-2013-141381

PATIENT
  Age: 46 Year
  Sex: Male

DRUGS (10)
  1. FUROSEMIDE [Suspect]
     Dosage: UNK
  2. ACETYLSALICYLIC ACID (} 100 MG) [Interacting]
     Dosage: UNK
  3. PHENOBARBITAL [Interacting]
     Dosage: UNK
  4. LANSOPRAZOLE [Interacting]
     Dosage: UNK
  5. PELARGONIUM SIDOIDES [Interacting]
     Indication: NASOPHARYNGITIS
     Dosage: 30 GTT TID
  6. CARBAMAZEPINE [Interacting]
     Dosage: UNK
  7. OLANZAPINE [Interacting]
     Dosage: UNK
  8. VALPROATE SODIUM [Interacting]
     Dosage: UNK
  9. ALLOPURINOL [Interacting]
     Dosage: UNK
  10. CANRENONE [Interacting]
     Dosage: UNK

REACTIONS (5)
  - Acute hepatic failure [Fatal]
  - Respiratory distress [Fatal]
  - Asthenia [None]
  - Tachycardia [None]
  - Drug interaction [None]
